FAERS Safety Report 8997258 (Version 1)
Quarter: 2013Q1

REPORT INFORMATION
  Report Type: Spontaneous
  Country: US (occurrence: US)
  Receive Date: 20130104
  Receipt Date: 20130104
  Transmission Date: 20140127
  Serious: No
  Sender: FDA-Public Use
  Company Number: US-PFIZER INC-2013002009

PATIENT
  Sex: Female

DRUGS (2)
  1. ADVIL [Suspect]
     Indication: PAIN
     Dosage: 200 MG, TWO TIMEA A DAY
     Dates: start: 201212, end: 20130101
  2. ADVIL PM [Suspect]
     Indication: PAIN
     Dosage: UNK
     Dates: start: 201212, end: 20130101

REACTIONS (5)
  - Headache [Unknown]
  - Abdominal pain upper [Unknown]
  - Feeling abnormal [Unknown]
  - Depressed mood [Unknown]
  - Abdominal pain lower [Unknown]
